FAERS Safety Report 23532522 (Version 2)
Quarter: 2024Q1

REPORT INFORMATION
  Report Type: Spontaneous
  Country: GB (occurrence: GB)
  Receive Date: 20240216
  Receipt Date: 20240326
  Transmission Date: 20240410
  Serious: Yes (Other)
  Sender: FDA-Public Use
  Company Number: None

PATIENT
  Age: 35 Year
  Sex: Female
  Weight: 78 kg

DRUGS (3)
  1. BOTOX [Suspect]
     Active Substance: ONABOTULINUMTOXINA
     Indication: Adverse drug reaction
     Dosage: TIME INTERVAL: AS NECESSARY
     Route: 065
     Dates: start: 20240203, end: 20240203
  2. SERTRALINE [Concomitant]
     Active Substance: SERTRALINE HYDROCHLORIDE
     Indication: Adverse drug reaction
     Dates: start: 2022
  3. ACYCLOVIR [Concomitant]
     Active Substance: ACYCLOVIR
     Indication: Adverse drug reaction

REACTIONS (3)
  - Product administered at inappropriate site [Unknown]
  - Vision blurred [Not Recovered/Not Resolved]
  - Influenza like illness [Unknown]

NARRATIVE: CASE EVENT DATE: 20240206
